FAERS Safety Report 4706279-0 (Version None)
Quarter: 2005Q3

REPORT INFORMATION
  Report Type: 
  Country: None (occurrence: None)
  Receive Date: 20050705
  Receipt Date: 20050413
  Transmission Date: 20060218
  Serious: Yes (Other)
  Sender: FDA-Public Use
  Company Number: FR-SP-2005-00741

PATIENT
  Age: 47 Year
  Sex: Male
  Weight: 81 kg

DRUGS (1)
  1. IMMUCYST [Suspect]
     Indication: URINARY BLADDER POLYP
     Route: 043

REACTIONS (3)
  - ABDOMINAL PAIN [None]
  - ASTHENIA [None]
  - GRANULOMATOUS LIVER DISEASE [None]
